FAERS Safety Report 7727694-7 (Version None)
Quarter: 2011Q3

REPORT INFORMATION
  Report Type: 
  Country: None (occurrence: None)
  Receive Date: 20110902
  Receipt Date: 20110824
  Transmission Date: 20111222
  Serious: Yes (Hospitalization, Other)
  Sender: FDA-Public Use
  Company Number: US-ASTRAZENECA-2008UW17553

PATIENT
  Age: 72 Year
  Sex: Female
  Weight: 67.1 kg

DRUGS (5)
  1. VITAMIN D [Concomitant]
  2. ARIMIDEX [Suspect]
     Indication: BREAST CANCER STAGE II
     Route: 048
     Dates: start: 20080201
  3. LIPITOR [Concomitant]
  4. FOSAMAX [Concomitant]
  5. BENACORT [Concomitant]

REACTIONS (7)
  - CATARACT [None]
  - HOT FLUSH [None]
  - ARTHRALGIA [None]
  - FATIGUE [None]
  - ARTHROPATHY [None]
  - WEIGHT INCREASED [None]
  - MYOCARDIAL INFARCTION [None]
